FAERS Safety Report 5787744-4 (Version None)
Quarter: 2008Q2

REPORT INFORMATION
  Report Type: 
  Country: None (occurrence: None)
  Receive Date: 20080624
  Receipt Date: 20080624
  Transmission Date: 20081010
  Serious: Yes (Hospitalization)
  Sender: FDA-Public Use
  Company Number: None

PATIENT
  Sex: Female
  Weight: 79 kg

DRUGS (4)
  1. CISPLATIN [Suspect]
     Dosage: 90 MG
  2. DOXORUBICIN HYDROCHLORIDE [Suspect]
     Dosage: 81.3 MG
  3. TAXOL [Suspect]
     Dosage: 289 MG
  4. NEULASTA [Suspect]
     Dosage: 6 MG

REACTIONS (10)
  - ABDOMINAL ADHESIONS [None]
  - ABDOMINAL PAIN [None]
  - NAUSEA [None]
  - PELVIC ABSCESS [None]
  - PERITONEAL ABSCESS [None]
  - RENAL FAILURE [None]
  - SMALL INTESTINAL OBSTRUCTION [None]
  - STREPTOCOCCAL INFECTION [None]
  - URINARY TRACT INFECTION [None]
  - VOMITING [None]
